FAERS Safety Report 23157623 (Version 2)
Quarter: 2023Q4

REPORT INFORMATION
  Report Type: Spontaneous
  Country: TW (occurrence: TW)
  Receive Date: 20231108
  Receipt Date: 20231204
  Transmission Date: 20240109
  Serious: Yes (Hospitalization)
  Sender: FDA-Public Use
  Company Number: TW-JNJFOC-20231105644

PATIENT
  Age: 51 Year
  Sex: Female
  Weight: 76.2 kg

DRUGS (19)
  1. SIMPONI [Suspect]
     Active Substance: GOLIMUMAB
     Indication: Psoriatic arthropathy
     Route: 058
     Dates: start: 20141031
  2. ARHEUMA [Concomitant]
     Indication: Rheumatoid arthritis
     Dosage: 1 CAP
     Dates: start: 20140502
  3. COLCHICINE [Concomitant]
     Active Substance: COLCHICINE
     Indication: Gout
     Dosage: 1TAB
     Dates: start: 20211207
  4. COLCHICINE [Concomitant]
     Active Substance: COLCHICINE
     Indication: Vasculitis
  5. PREDNISOLONE [Concomitant]
     Active Substance: PREDNISOLONE
     Indication: Immune system disorder
     Dosage: 1 TAB
     Dates: start: 20201208
  6. PREDNISOLONE [Concomitant]
     Active Substance: PREDNISOLONE
     Indication: Hypersensitivity
  7. PREDNISOLONE [Concomitant]
     Active Substance: PREDNISOLONE
     Indication: Asthma
  8. PREDNISOLONE [Concomitant]
     Active Substance: PREDNISOLONE
     Indication: Adrenal insufficiency
  9. NEURONTIN [Concomitant]
     Active Substance: GABAPENTIN
     Indication: Epilepsy
     Dosage: 1 CAP / QN
     Dates: start: 20230508
  10. NEURONTIN [Concomitant]
     Active Substance: GABAPENTIN
     Indication: Post herpetic neuralgia
  11. BISOPROLOL FUMARATE [Concomitant]
     Active Substance: BISOPROLOL FUMARATE
     Indication: Hypertension
     Dosage: 1 TAB
     Dates: start: 20230214
  12. BISOPROLOL FUMARATE [Concomitant]
     Active Substance: BISOPROLOL FUMARATE
     Indication: Angina pectoris
  13. BISOPROLOL FUMARATE [Concomitant]
     Active Substance: BISOPROLOL FUMARATE
     Indication: Cardiac failure
  14. HYDROCHLOROTHIAZIDE [Concomitant]
     Active Substance: HYDROCHLOROTHIAZIDE
     Indication: Hypertension
     Dosage: 40/5/12.5MG SEVIKAR TAB?0.5TAB
     Dates: start: 20230214
  15. METHOTREXATE [Concomitant]
     Active Substance: METHOTREXATE
     Indication: Rheumatoid arthritis
     Dosage: 6TAB/QW
     Dates: start: 20140502
  16. METHOTREXATE [Concomitant]
     Active Substance: METHOTREXATE
     Indication: Psoriasis
  17. METHOTREXATE [Concomitant]
     Active Substance: METHOTREXATE
     Indication: Leukaemia
  18. METHOTREXATE [Concomitant]
     Active Substance: METHOTREXATE
     Indication: Lymphoma
  19. FOLIC ACID [Concomitant]
     Active Substance: FOLIC ACID
     Indication: Anaemia
     Dosage: VITAMINS (FOLIC ACID, TREATMENT OF ANEMIA)
     Dates: start: 20140502

REACTIONS (1)
  - Osteoarthritis [Unknown]
